FAERS Safety Report 12543521 (Version 1)
Quarter: 2016Q3

REPORT INFORMATION
  Report Type: Spontaneous
  Country: US (occurrence: None)
  Receive Date: 20160708
  Receipt Date: 20160708
  Transmission Date: 20161109
  Serious: Yes (Disabling)
  Sender: FDA-Public Use
  Company Number: None

PATIENT
  Age: 49 Year
  Sex: Female
  Weight: 89.81 kg

DRUGS (9)
  1. TURMERIC AND CURCUMIN [Concomitant]
  2. ONDANSETRON [Concomitant]
     Active Substance: ONDANSETRON
  3. ZEGRID OTC [Concomitant]
     Active Substance: OMEPRAZOLE\SODIUM BICARBONATE
  4. ZYRTEC [Concomitant]
     Active Substance: CETIRIZINE HYDROCHLORIDE
  5. ESSURE [Concomitant]
     Active Substance: DEVICE
  6. VITAMIN D3 [Concomitant]
     Active Substance: CHOLECALCIFEROL
  7. MINASTRIN 24 FE [Suspect]
     Active Substance: ETHINYL ESTRADIOL\NORETHINDRONE ACETATE
     Indication: HAEMORRHAGE
     Dosage: 28 TABLET(S) IN THE MORNING TAKEN BY MOUTH
     Route: 048
     Dates: start: 20160616, end: 20160625
  8. RIZATRIPTAN. [Concomitant]
     Active Substance: RIZATRIPTAN
  9. KRILL OIL [Concomitant]
     Active Substance: DIETARY SUPPLEMENT

REACTIONS (7)
  - Pain in extremity [None]
  - Condition aggravated [None]
  - Oedema peripheral [None]
  - Joint swelling [None]
  - Migraine [None]
  - Tinnitus [None]
  - Mass [None]

NARRATIVE: CASE EVENT DATE: 20160624
